FAERS Safety Report 21747045 (Version 1)
Quarter: 2022Q4

REPORT INFORMATION
  Report Type: 
  Country: None (occurrence: None)
  Receive Date: 20221219
  Receipt Date: 20221219
  Transmission Date: 20230113
  Serious: Yes (Hospitalization, Other)
  Sender: FDA-Public Use
  Company Number: None

PATIENT
  Age: 43 Year
  Sex: Female

DRUGS (1)
  1. FERROUS SULFATE [Suspect]
     Active Substance: FERROUS SULFATE

REACTIONS (7)
  - Haematochezia [Recovered/Resolved]
  - Flank pain [Recovered/Resolved]
  - Chronic gastritis [Recovered/Resolved]
  - Gastric ulcer [Recovered/Resolved]
  - Ischaemic gastritis [Recovered/Resolved]
  - Upper gastrointestinal haemorrhage [Recovered/Resolved]
  - Abdominal pain upper [Recovered/Resolved]
